FAERS Safety Report 5914391-3 (Version None)
Quarter: 2008Q4

REPORT INFORMATION
  Report Type: 
  Country: None (occurrence: None)
  Receive Date: 20081009
  Receipt Date: 20081001
  Transmission Date: 20090506
  Serious: Yes (Other)
  Sender: FDA-Public Use
  Company Number: KR-GENENTECH-267612

PATIENT
  Age: 91 Year
  Sex: Male

DRUGS (1)
  1. BEVACIZUMAB [Suspect]
     Indication: MACULAR DEGENERATION
     Route: 031

REACTIONS (2)
  - RETINAL HAEMORRHAGE [None]
  - VISUAL ACUITY REDUCED [None]
